FAERS Safety Report 7525045-4 (Version None)
Quarter: 2011Q2

REPORT INFORMATION
  Report Type: 
  Country: None (occurrence: None)
  Receive Date: 20110606
  Receipt Date: 20110523
  Transmission Date: 20111010
  Serious: Yes (Hospitalization, Other)
  Sender: FDA-Public Use
  Company Number: US-ELI_LILLY_AND_COMPANY-US201009003843

PATIENT
  Sex: Female

DRUGS (7)
  1. FORTEO [Suspect]
     Indication: OSTEOPOROSIS
     Dosage: 20 UG, DAILY (1/D)
     Dates: start: 20100701
  2. CRESTOR [Concomitant]
     Indication: BLOOD CHOLESTEROL ABNORMAL
     Dosage: 5 MG, UNK
  3. QUINAPRIL HCL [Concomitant]
     Indication: BLOOD PRESSURE ABNORMAL
     Dosage: 10 MG, UNK
  4. MULTI-VITAMIN [Concomitant]
  5. FORTEO [Suspect]
     Dosage: 20 UG, QD
  6. SYNTHROID [Concomitant]
     Dosage: 112 UG, UNK
  7. CALTRATE + VITAMIN D [Concomitant]
     Indication: OSTEOPOROSIS

REACTIONS (7)
  - CAROTID ARTERY ANEURYSM [None]
  - DIZZINESS [None]
  - URINE COLOUR ABNORMAL [None]
  - INCORRECT STORAGE OF DRUG [None]
  - DISCOMFORT [None]
  - FEELING ABNORMAL [None]
  - DRUG DOSE OMISSION [None]
